FAERS Safety Report 8134696-8 (Version None)
Quarter: 2012Q1

REPORT INFORMATION
  Report Type: 
  Country: None (occurrence: None)
  Receive Date: 20120103
  Receipt Date: 20111111
  Transmission Date: 20120608
  Serious: No
  Sender: FDA-Public Use
  Company Number: AE-2011-003422

PATIENT
  Age: 38 Year
  Sex: Male
  Weight: 82.1011 kg

DRUGS (7)
  1. BUSPAR (BUSPIRONE HYDROCHLORIDEA) [Concomitant]
  2. TRAZODONE HCL [Concomitant]
  3. PEGASYS [Concomitant]
  4. LITHIUM CARBONATE [Concomitant]
  5. RIBAVIRIN [Concomitant]
  6. LAMICTAL [Concomitant]
  7. INCIVEK [Suspect]
     Dosage: 2250 MG (750 MG, 1 IN 8 HR)
     Dates: start: 20111110

REACTIONS (1)
  - TONGUE DISORDER [None]
